FAERS Safety Report 12847481 (Version 2)
Quarter: 2016Q4

REPORT INFORMATION
  Report Type: Spontaneous
  Country: JP (occurrence: JP)
  Receive Date: 20161014
  Receipt Date: 20161109
  Transmission Date: 20170207
  Serious: Yes (Hospitalization, Other)
  Sender: FDA-Public Use
  Company Number: JP-PFIZER INC-2016478156

PATIENT
  Age: 17 Year
  Sex: Male

DRUGS (1)
  1. LYRICA [Suspect]
     Active Substance: PREGABALIN
     Dosage: UNK
     Route: 048
     Dates: start: 20161003, end: 20161011

REACTIONS (4)
  - Abasia [Unknown]
  - Diplegia [Unknown]
  - Product use issue [Unknown]
  - Gait disturbance [Unknown]

NARRATIVE: CASE EVENT DATE: 201610
